FAERS Safety Report 4404186-4 (Version None)
Quarter: 2004Q3

REPORT INFORMATION
  Report Type: 
  Country: None (occurrence: None)
  Receive Date: 20040719
  Receipt Date: 20040707
  Transmission Date: 20050211
  Serious: Yes (Hospitalization)
  Sender: FDA-Public Use
  Company Number: SYN_0019_2004

PATIENT
  Sex: Female

DRUGS (2)
  1. PAROXETINE (SALT FORM NOT SPECIFIED) [Suspect]
     Indication: ANXIETY
     Dosage: DURING PREGNANCY
  2. PAROXETINE (SALT FORM NOT SPECIFIED) [Suspect]
     Indication: DRUG EXPOSURE DURING PREGNANCY
     Dosage: DURING PREGNANCY

REACTIONS (7)
  - BRADYCARDIA NEONATAL [None]
  - CONVULSION NEONATAL [None]
  - DRUG EXPOSURE DURING PREGNANCY [None]
  - ELECTROENCEPHALOGRAM ABNORMAL [None]
  - HYPOPNOEA [None]
  - HYPOTONIA NEONATAL [None]
  - RESPIRATORY DISORDER NEONATAL [None]
